FAERS Safety Report 14630969 (Version 1)
Quarter: 2018Q1

REPORT INFORMATION
  Report Type: Spontaneous
  Country: FR (occurrence: FR)
  Receive Date: 20180313
  Receipt Date: 20180313
  Transmission Date: 20180509
  Serious: Yes (Other)
  Sender: FDA-Public Use
  Company Number: FR-ASTRAZENECA-2018SE28175

PATIENT
  Age: 63 Year
  Sex: Male
  Weight: 90 kg

DRUGS (1)
  1. CRESTOR [Suspect]
     Active Substance: ROSUVASTATIN CALCIUM
     Indication: CARDIOVASCULAR DISORDER
     Route: 048
     Dates: start: 20110103, end: 20171002

REACTIONS (5)
  - Suicidal ideation [Unknown]
  - Irritability [Unknown]
  - Sleep disorder [Unknown]
  - Nightmare [Unknown]
  - Depressed mood [Unknown]

NARRATIVE: CASE EVENT DATE: 20171002
